FAERS Safety Report 8948470 (Version 1)
Quarter: 2012Q4

REPORT INFORMATION
  Report Type: Spontaneous
  Country: DK (occurrence: None)
  Receive Date: 20121123
  Receipt Date: 20121123
  Transmission Date: 20130627
  Serious: Yes (Other)
  Sender: FDA-Public Use
  Company Number: 2012MA013477

PATIENT
  Age: 53 Year
  Sex: Female

DRUGS (9)
  1. CITALOPRAM HYDROBROMIDE [Suspect]
     Route: 048
     Dates: start: 20121015, end: 20121029
  2. PREMARIN [Concomitant]
  3. OMEPRAZOLE [Concomitant]
  4. TRAMADOL [Concomitant]
  5. MORPHINE [Concomitant]
  6. LISINOPRIL [Concomitant]
  7. MEBEVERINE [Concomitant]
  8. ETANERCEPT [Concomitant]
  9. CODEINE [Concomitant]

REACTIONS (2)
  - Rheumatoid arthritis [None]
  - Condition aggravated [None]
